FAERS Safety Report 5793096-6 (Version None)
Quarter: 2008Q2

REPORT INFORMATION
  Report Type: 
  Country: None (occurrence: None)
  Receive Date: 20080626
  Receipt Date: 20080626
  Transmission Date: 20081010
  Serious: Yes (Other)
  Sender: FDA-Public Use
  Company Number: None

PATIENT
  Age: 44 Year
  Sex: Male
  Weight: 92.3 kg

DRUGS (3)
  1. EFAVIRENZ [Suspect]
     Dosage: 600 EVERY DAY PO
     Route: 048
     Dates: start: 20080515, end: 20080606
  2. EMTRICITABINE [Suspect]
     Dosage: 200 MG EVERY DAY PO
     Route: 048
     Dates: start: 20080515, end: 20080606
  3. TENOFOVIR [Suspect]
     Dosage: 300 MG EVERY DAY PO
     Route: 048
     Dates: start: 20080515, end: 20080606

REACTIONS (1)
  - INSOMNIA [None]
